FAERS Safety Report 6580991-3 (Version None)
Quarter: 2010Q1

REPORT INFORMATION
  Report Type: 
  Country: None (occurrence: None)
  Receive Date: 20100215
  Receipt Date: 20100206
  Transmission Date: 20100710
  Serious: Yes (Hospitalization)
  Sender: FDA-Public Use
  Company Number: US-AMGEN-QUU391367

PATIENT
  Sex: Female

DRUGS (3)
  1. ENBREL [Suspect]
     Indication: RHEUMATOID ARTHRITIS
     Route: 058
     Dates: start: 20040201
  2. METHOTREXATE [Concomitant]
     Dates: start: 20050302
  3. REMICADE [Concomitant]

REACTIONS (2)
  - RHEUMATOID ARTHRITIS [None]
  - UTERINE PROLAPSE [None]
